FAERS Safety Report 8687714 (Version 3)
Quarter: 2013Q4

REPORT INFORMATION
  Report Type: Spontaneous
  Country: US (occurrence: US)
  Receive Date: 20120727
  Receipt Date: 20131101
  Transmission Date: 20140711
  Serious: No
  Sender: FDA-Public Use
  Company Number: US-009507513-2012SP027804

PATIENT
  Age: 29 Year
  Sex: Female
  Weight: 65.77 kg

DRUGS (6)
  1. CLARITIN-D-24 [Suspect]
     Indication: SEASONAL ALLERGY
     Dosage: 10 MG, ONCE
     Route: 048
     Dates: start: 20120417
  2. CLARITIN-D-24 [Suspect]
     Indication: ALLERGY TO ANIMAL
  3. CLARITIN-D-24 [Suspect]
     Indication: EYE PRURITUS
  4. CLARITIN-D-24 [Suspect]
     Indication: SNEEZING
  5. CLARITIN-D-24 [Suspect]
     Indication: NASAL CONGESTION
  6. CLARITIN-D-24 [Suspect]
     Indication: MEDICAL OBSERVATION

REACTIONS (2)
  - Somnolence [Recovered/Resolved]
  - Euphoric mood [Recovered/Resolved]
